FAERS Safety Report 8565432-9 (Version None)
Quarter: 2012Q3

REPORT INFORMATION
  Report Type: 
  Country: None (occurrence: None)
  Receive Date: 20120803
  Receipt Date: 20120730
  Transmission Date: 20120928
  Serious: Yes (Other)
  Sender: FDA-Public Use
  Company Number: US-PFIZER INC-2012157007

PATIENT
  Sex: Male
  Weight: 77.098 kg

DRUGS (3)
  1. XANAX [Suspect]
     Indication: STRESS
  2. XANAX [Suspect]
     Indication: PANIC ATTACK
     Dosage: 1 MG, 3X/DAY
     Route: 048
     Dates: end: 20110701
  3. NORCO [Concomitant]
     Indication: PAIN
     Dosage: UNK

REACTIONS (14)
  - SUICIDAL IDEATION [None]
  - DISTURBANCE IN ATTENTION [None]
  - HYPERHIDROSIS [None]
  - INSOMNIA [None]
  - WITHDRAWAL SYNDROME [None]
  - TREMOR [None]
  - NIGHT SWEATS [None]
  - CHEST PAIN [None]
  - GASTRIC DISORDER [None]
  - NAUSEA [None]
  - DECREASED APPETITE [None]
  - STRESS [None]
  - TACHYPHRENIA [None]
  - ARTHRALGIA [None]
